FAERS Safety Report 11872228 (Version 1)
Quarter: 2015Q4

REPORT INFORMATION
  Report Type: Report from Study
  Country: JP (occurrence: JP)
  Receive Date: 20151228
  Receipt Date: 20151228
  Transmission Date: 20160305
  Serious: Yes (Death, Life-Threatening, Hospitalization)
  Sender: FDA-Public Use
  Company Number: JP-NAPPMUNDI-GBR-2015-0032985

PATIENT
  Age: 72 Year
  Sex: Female

DRUGS (14)
  1. MAGLAX [Concomitant]
     Active Substance: MAGNESIUM OXIDE
     Indication: CONSTIPATION PROPHYLAXIS
     Dosage: 0.99 G, DAILY
     Route: 048
     Dates: start: 20150825, end: 20150901
  2. LAC-B [Concomitant]
     Active Substance: BIFIDOBACTERIUM SPP.
     Indication: GASTROINTESTINAL DISORDER
     Dosage: 3 G, DAILY
     Route: 048
     Dates: start: 20141027, end: 20150901
  3. PRAVASTATIN                        /00880402/ [Concomitant]
     Active Substance: PRAVASTATIN SODIUM
     Indication: HYPERLIPIDAEMIA
     Dosage: 10 MG, DAILY
     Route: 048
     Dates: start: 2008, end: 20150901
  4. CEFMETAZOLE SODIUM [Concomitant]
     Active Substance: CEFMETAZOLE SODIUM
     Indication: PNEUMONIA
     Dosage: UNK
     Dates: start: 20150902
  5. FERROUS CITRATE [Concomitant]
     Active Substance: FERROUS CITRATE
     Indication: IRON DEFICIENCY ANAEMIA
     Dosage: 100 MG, DAILY
     Route: 048
     Dates: start: 20141017, end: 20150901
  6. PROMAC                             /01312301/ [Concomitant]
     Active Substance: NITROFURANTOIN
     Indication: DYSGEUSIA
     Dosage: 150 MG, DAILY
     Route: 048
     Dates: start: 20150512, end: 20150901
  7. OXYCONTIN [Suspect]
     Active Substance: OXYCODONE HYDROCHLORIDE
     Indication: CANCER PAIN
     Dosage: 10 MG, DAILY
     Route: 048
     Dates: start: 20150825, end: 20150901
  8. NEXIUM [Concomitant]
     Active Substance: ESOMEPRAZOLE MAGNESIUM
     Indication: GASTRITIS PROPHYLAXIS
     Dosage: 10 MG, DAILY
     Route: 048
     Dates: start: 20150421, end: 20150901
  9. NIFEDIPINE. [Concomitant]
     Active Substance: NIFEDIPINE
     Indication: HYPERTENSION
     Dosage: 40 MG, DAILY
     Route: 048
     Dates: start: 2008, end: 20150901
  10. FAMOTIDINE. [Concomitant]
     Active Substance: FAMOTIDINE
     Indication: GASTRITIS PROPHYLAXIS
     Dosage: 20 MG, DAILY
     Route: 048
     Dates: start: 2008, end: 20150901
  11. CELECOX [Concomitant]
     Active Substance: CELECOXIB
     Indication: PAIN
     Dosage: 400 MG, DAILY
     Route: 048
     Dates: start: 20150818, end: 20150901
  12. MYONAL                             /01071502/ [Concomitant]
     Indication: SPINAL OSTEOARTHRITIS
     Dosage: 150 MG, DAILY
     Route: 048
     Dates: start: 20150714, end: 20150901
  13. VOGLIBOSE [Concomitant]
     Active Substance: VOGLIBOSE
     Indication: DIABETES MELLITUS
     Dosage: 0.9 MG, DAILY
     Route: 048
     Dates: start: 2008, end: 20150901
  14. NOVAMIN                            /00013301/ [Concomitant]
     Active Substance: PROCHLORPERAZINE MALEATE
     Indication: PROPHYLAXIS OF NAUSEA AND VOMITING
     Dosage: 15 MG, DAILY
     Route: 048
     Dates: start: 20150825, end: 20150901

REACTIONS (6)
  - Cardiac arrest [Fatal]
  - Malaise [Not Recovered/Not Resolved]
  - Infrequent bowel movements [Unknown]
  - Respiratory failure [Not Recovered/Not Resolved]
  - Depressed level of consciousness [Unknown]
  - Productive cough [Unknown]

NARRATIVE: CASE EVENT DATE: 201508
